FAERS Safety Report 8554391-0 (Version None)
Quarter: 2012Q3

REPORT INFORMATION
  Report Type: 
  Country: None (occurrence: None)
  Receive Date: 20120731
  Receipt Date: 20120723
  Transmission Date: 20120928
  Serious: Yes (Other)
  Sender: FDA-Public Use
  Company Number: US-009507513-1207USA010191

PATIENT

DRUGS (2)
  1. JANUMET [Suspect]
     Route: 048
  2. TYKERB [Suspect]
     Dosage: 1500 MG, QD
     Route: 048

REACTIONS (9)
  - PRURITUS [None]
  - DIARRHOEA [None]
  - PALMAR-PLANTAR ERYTHRODYSAESTHESIA SYNDROME [None]
  - SKIN CHAPPED [None]
  - PAIN IN EXTREMITY [None]
  - MALAISE [None]
  - DRUG INTERACTION [None]
  - UPPER RESPIRATORY TRACT INFECTION [None]
  - ADVERSE EVENT [None]
